FAERS Safety Report 18353658 (Version 1)
Quarter: 2020Q4

REPORT INFORMATION
  Report Type: Spontaneous
  Country: US (occurrence: US)
  Receive Date: 20201006
  Receipt Date: 20201006
  Transmission Date: 20210114
  Serious: No
  Sender: FDA-Public Use
  Company Number: US-ROCHE-2407976

PATIENT
  Sex: Female
  Weight: 62.65 kg

DRUGS (4)
  1. ALOXI [Concomitant]
     Active Substance: PALONOSETRON HYDROCHLORIDE
     Route: 042
     Dates: start: 20190808
  2. AMLODIPINE [Concomitant]
     Active Substance: AMLODIPINE BESYLATE
     Route: 048
     Dates: start: 20190808
  3. ZELBORAF [Suspect]
     Active Substance: VEMURAFENIB
     Indication: IRON DEFICIENCY ANAEMIA
     Dosage: TAKE 4 TABLETS BY MOUTH
     Route: 048
     Dates: start: 20190809
  4. DOXYCYCLINE. [Concomitant]
     Active Substance: DOXYCYCLINE
     Route: 048
     Dates: start: 20190808

REACTIONS (9)
  - Weight decreased [Unknown]
  - Intentional product use issue [Unknown]
  - Product dose omission issue [Unknown]
  - Diarrhoea [Unknown]
  - Pain in extremity [Unknown]
  - Decreased appetite [Unknown]
  - Off label use [Unknown]
  - Erythema [Unknown]
  - Arthralgia [Unknown]
